FAERS Safety Report 5213424-X (Version None)
Quarter: 2007Q1

REPORT INFORMATION
  Report Type: 
  Country: None (occurrence: None)
  Receive Date: 20070119
  Receipt Date: 20070110
  Transmission Date: 20070707
  Serious: Yes (Hospitalization, Other)
  Sender: FDA-Public Use
  Company Number: CA-MERCK-0607CAN00031

PATIENT
  Age: 70 Year
  Sex: Female
  Weight: 63 kg

DRUGS (12)
  1. ZETIA [Suspect]
     Route: 048
     Dates: start: 20060201, end: 20060401
  2. ZETIA [Suspect]
     Route: 048
     Dates: start: 20060401
  3. ROSUVASTATIN CALCIUM [Suspect]
     Route: 048
     Dates: start: 20050701, end: 20060401
  4. ROSUVASTATIN CALCIUM [Suspect]
     Route: 048
     Dates: start: 20050320, end: 20050701
  5. VALSARTAN [Concomitant]
     Route: 065
  6. ASPIRIN [Concomitant]
     Route: 065
  7. HYDROCHLOROTHIAZIDE [Concomitant]
     Route: 065
  8. ATENOLOL [Concomitant]
     Route: 048
  9. ATENOLOL [Concomitant]
     Route: 048
  10. DIMENHYDRINATE [Concomitant]
     Route: 065
  11. ASPIRIN AND CAFFEINE, CITRATED AND CODEINE PHOSPHATE [Concomitant]
     Indication: MYALGIA
     Route: 065
  12. ASPIRIN AND CAFFEINE, CITRATED AND CODEINE PHOSPHATE [Concomitant]
     Route: 065

REACTIONS (13)
  - ABDOMINAL PAIN [None]
  - BLOOD CREATINE PHOSPHOKINASE INCREASED [None]
  - DYSPNOEA [None]
  - GENERAL PHYSICAL HEALTH DETERIORATION [None]
  - HAEMOGLOBIN DECREASED [None]
  - HYPERKALAEMIA [None]
  - HYPERPHOSPHATAEMIA [None]
  - MALAISE [None]
  - MUSCLE SPASMS [None]
  - RENAL FAILURE ACUTE [None]
  - RENAL TUBULAR NECROSIS [None]
  - RHABDOMYOLYSIS [None]
  - URINARY TRACT INFECTION [None]
